FAERS Safety Report 7624850-3 (Version None)
Quarter: 2011Q3

REPORT INFORMATION
  Report Type: 
  Country: None (occurrence: None)
  Receive Date: 20110720
  Receipt Date: 20110712
  Transmission Date: 20111222
  Serious: Yes (Hospitalization)
  Sender: FDA-Public Use
  Company Number: BR-ASTRAZENECA-2011SE42293

PATIENT
  Age: 62 Year
  Sex: Female
  Weight: 95 kg

DRUGS (7)
  1. ATACAND HCT [Suspect]
     Indication: HYPERTENSION
     Dosage: 8/12.5 MG, EVERY OTHER DAY
     Route: 048
     Dates: start: 20110701
  2. ATACAND [Suspect]
     Route: 048
     Dates: start: 20110701
  3. SYNTHROID [Concomitant]
     Indication: THYROID DISORDER
     Route: 048
     Dates: start: 20060101
  4. LISADOR [Concomitant]
     Indication: OSTEOARTHRITIS
     Dosage: PRN
     Route: 048
  5. LISADOR [Concomitant]
     Indication: BACK PAIN
     Dosage: PRN
     Route: 048
  6. ATACAND [Suspect]
     Indication: HYPERTENSION
     Route: 048
     Dates: start: 20010101, end: 20110701
  7. SUPAN [Concomitant]
     Indication: SEDATIVE THERAPY
     Route: 048

REACTIONS (4)
  - OFF LABEL USE [None]
  - THYROID NEOPLASM [None]
  - THYROIDECTOMY [None]
  - OEDEMA PERIPHERAL [None]
